FAERS Safety Report 5892978 (Version 25)
Quarter: 2016Q1

REPORT INFORMATION
  Report Type: Spontaneous
  Country: US (occurrence: US)
  Receive Date: 20041203
  Receipt Date: 20160223
  Transmission Date: 20160526
  Serious: Yes (Hospitalization, Disabling, Other)
  Sender: FDA-Public Use
  Company Number: US-ROCHE-387326

PATIENT
  Age: 16 Year
  Sex: Male
  Weight: 61.2 kg

DRUGS (12)
  1. ACCUTANE [Suspect]
     Active Substance: ISOTRETINOIN
     Indication: ACNE CYSTIC
     Dosage: THE PATIENT WAS TAKING ONE CAP BY MOUTH EVERY OTHER DAY ALTERNATING WITH 2 CAPS EVERY OTHER DAY
     Route: 048
     Dates: start: 20010828, end: 20011201
  2. PREDNISOLONE. [Concomitant]
     Active Substance: PREDNISOLONE
     Dosage: 11SEP01 TO UNK: 30MG QAM AND 20MG QPM
     Route: 048
  3. PREDNISOLONE. [Concomitant]
     Active Substance: PREDNISOLONE
     Dosage: 10 OCT 2001 TO 07NOV2001: 20MG QAM
     Route: 048
     Dates: start: 20011010, end: 20011107
  4. ASACOL [Concomitant]
     Active Substance: MESALAMINE
  5. BACTRIM DS [Concomitant]
     Active Substance: SULFAMETHOXAZOLE\TRIMETHOPRIM
     Route: 065
  6. AMOXICILLIN. [Concomitant]
     Active Substance: AMOXICILLIN
     Indication: ACNE CYSTIC
     Route: 048
     Dates: start: 20010828, end: 20011107
  7. PREDNISOLONE. [Concomitant]
     Active Substance: PREDNISOLONE
     Indication: ACNE CYSTIC
     Dosage: 28AUG01 TO 11SEP01 40MGQAM 30MG QPM
     Route: 048
     Dates: start: 20010828, end: 20010911
  8. PREDNISOLONE. [Concomitant]
     Active Substance: PREDNISOLONE
     Dosage: 31-MAR-2003 - 14MAY2003: 40MG QD
     Route: 048
     Dates: start: 20030331, end: 20030514
  9. ALEVE [Concomitant]
     Active Substance: NAPROXEN SODIUM
     Indication: HEADACHE
     Route: 065
  10. PREDNISOLONE. [Concomitant]
     Active Substance: PREDNISOLONE
     Dosage: 17-MAR-2003 - UNK: 55MG QD
     Route: 048
  11. CLARITIN [Concomitant]
     Active Substance: LORATADINE
     Indication: RHINITIS
     Route: 065
  12. ADVIL [Concomitant]
     Active Substance: IBUPROFEN
     Indication: RHINITIS
     Route: 048

REACTIONS (47)
  - Hypoacusis [Unknown]
  - Weight decreased [Unknown]
  - Colitis [Unknown]
  - Internal injury [Unknown]
  - Scar [Unknown]
  - Anaemia [Unknown]
  - Haematochezia [Unknown]
  - Rectal haemorrhage [Unknown]
  - Anal abscess [Unknown]
  - Chest pain [Unknown]
  - Dyspnoea exertional [Unknown]
  - Jaundice [Unknown]
  - Liver function test increased [Unknown]
  - Fatigue [Unknown]
  - Anal fistula [Not Recovered/Not Resolved]
  - Polyp [Unknown]
  - Migraine [Unknown]
  - Cholelithiasis [Recovered/Resolved]
  - Abdominal pain upper [Unknown]
  - Pouchitis [Unknown]
  - Headache [Unknown]
  - Joint swelling [Unknown]
  - Lip dry [Unknown]
  - Anal fistula [Not Recovered/Not Resolved]
  - Colitis ulcerative [Not Recovered/Not Resolved]
  - Hernia [Recovering/Resolving]
  - Abdominal pain [Unknown]
  - Malnutrition [Unknown]
  - Intestinal haemorrhage [Unknown]
  - Gastrointestinal disorder [Unknown]
  - Acoustic neuroma [Unknown]
  - Haematemesis [Unknown]
  - Inflammatory bowel disease [Unknown]
  - Hepatic enzyme increased [Unknown]
  - Irritable bowel syndrome [Unknown]
  - Pyoderma gangrenosum [Unknown]
  - Diarrhoea [Unknown]
  - Decreased appetite [Unknown]
  - Dehydration [Unknown]
  - Crohn^s disease [Unknown]
  - Acoustic neuroma [Unknown]
  - Meningioma [Not Recovered/Not Resolved]
  - Hyperplasia [Unknown]
  - Granuloma [Unknown]
  - Hypersensitivity [Unknown]
  - Anxiety [Unknown]
  - Depression [Unknown]

NARRATIVE: CASE EVENT DATE: 20010911
